FAERS Safety Report 4849175-0 (Version None)
Quarter: 2005Q4

REPORT INFORMATION
  Report Type: 
  Country: None (occurrence: None)
  Receive Date: 20051209
  Receipt Date: 20051129
  Transmission Date: 20060501
  Serious: Yes (Death)
  Sender: FDA-Public Use
  Company Number: LB-MERCK-0511USA04635

PATIENT
  Age: 52 Year
  Sex: Male

DRUGS (5)
  1. PRIMAXIN [Suspect]
     Route: 042
  2. DIFLUCAN [Concomitant]
     Route: 065
  3. AMIKIN [Concomitant]
     Route: 065
  4. TARGOCID [Concomitant]
     Route: 065
  5. FORTUM [Concomitant]
     Route: 065

REACTIONS (1)
  - INFECTION [None]
